FAERS Safety Report 4446263-8 (Version None)
Quarter: 2004Q3

REPORT INFORMATION
  Report Type: 
  Country: None (occurrence: None)
  Receive Date: 20040907
  Receipt Date: 20040820
  Transmission Date: 20050211
  Serious: Yes (Death)
  Sender: FDA-Public Use
  Company Number: 04P-163-0271124-00

PATIENT
  Age: 87 Year
  Sex: Male

DRUGS (1)
  1. SYNTHROID [Suspect]
     Indication: HYPOTHYROIDISM
     Dosage: 125 MCG, 1 IN1 D, PER ORAL
     Route: 048
     Dates: start: 19840101, end: 20040801

REACTIONS (2)
  - CARDIOMYOPATHY [None]
  - CONDITION AGGRAVATED [None]
